FAERS Safety Report 5635104-9 (Version None)
Quarter: 2008Q1

REPORT INFORMATION
  Report Type: 
  Country: None (occurrence: None)
  Receive Date: 20080222
  Receipt Date: 20080213
  Transmission Date: 20080703
  Serious: Yes (Other)
  Sender: FDA-Public Use
  Company Number: BR-PFIZER INC-2007054865

PATIENT
  Sex: Male
  Weight: 78 kg

DRUGS (4)
  1. VIAGRA [Suspect]
     Indication: ERECTILE DYSFUNCTION
     Route: 048
     Dates: start: 20030901, end: 20070701
  2. INSULIN [Concomitant]
     Route: 058
  3. CAPOTEN [Concomitant]
     Route: 048
  4. LASIX [Concomitant]
     Route: 048

REACTIONS (5)
  - CATARACT [None]
  - EYE HAEMORRHAGE [None]
  - HEADACHE [None]
  - OCULAR HYPERAEMIA [None]
  - RETINAL DETACHMENT [None]
